FAERS Safety Report 6017015-2 (Version None)
Quarter: 2008Q4

REPORT INFORMATION
  Report Type: 
  Country: None (occurrence: None)
  Receive Date: 20081223
  Receipt Date: 20081208
  Transmission Date: 20090506
  Serious: Yes (Other)
  Sender: FDA-Public Use
  Company Number: BR-ROCHE-601739

PATIENT
  Age: 27 Year
  Sex: Male
  Weight: 70 kg

DRUGS (1)
  1. ROACUTAN [Suspect]
     Indication: ACNE
     Dosage: TAKEN 2 CAPSULES PER DAY.
     Route: 048
     Dates: start: 20070901, end: 20081001

REACTIONS (2)
  - DEPRESSION [None]
  - SUICIDE ATTEMPT [None]
